FAERS Safety Report 6876351-8 (Version None)
Quarter: 2010Q3

REPORT INFORMATION
  Report Type: 
  Country: None (occurrence: None)
  Receive Date: 20100727
  Receipt Date: 20070910
  Transmission Date: 20110219
  Serious: Yes (Hospitalization, Other)
  Sender: FDA-Public Use
  Company Number: US-PFIZER INC-2006109842

PATIENT
  Sex: Female
  Weight: 90.7 kg

DRUGS (2)
  1. CELEBREX [Suspect]
     Indication: PAIN
     Dates: start: 20000901, end: 20001101
  2. VIOXX [Suspect]
     Indication: OSTEOARTHRITIS
     Dates: start: 20001201

REACTIONS (1)
  - PULMONARY EMBOLISM [None]
